FAERS Safety Report 4967403-8 (Version None)
Quarter: 2006Q2

REPORT INFORMATION
  Report Type: 
  Country: None (occurrence: None)
  Receive Date: 20060410
  Receipt Date: 20060207
  Transmission Date: 20061013
  Serious: Yes (Death)
  Sender: FDA-Public Use
  Company Number: ES-BRISTOL-MYERS SQUIBB COMPANY-13276431

PATIENT
  Age: 60 Year
  Sex: Male
  Weight: 70 kg

DRUGS (7)
  1. ABILIFY [Suspect]
     Indication: SCHIZOPHRENIA
     Dates: start: 20051003, end: 20051013
  2. ABILIFY [Suspect]
     Indication: DEPRESSION
     Dates: start: 20051003, end: 20051013
  3. SINOGAN [Suspect]
     Dates: start: 20051013, end: 20051016
  4. ROHIPNOL [Suspect]
  5. THIORIDAZINE HCL [Concomitant]
     Dates: start: 19800101, end: 20050101
  6. MAJEPTIL [Concomitant]
     Dates: start: 19800101, end: 20051003
  7. AKINETON [Concomitant]
     Dates: start: 19800101, end: 20051003

REACTIONS (2)
  - COMPLETED SUICIDE [None]
  - DRUG INEFFECTIVE [None]
